FAERS Safety Report 19927699 (Version 1)
Quarter: 2021Q4

REPORT INFORMATION
  Report Type: Spontaneous
  Country: US (occurrence: US)
  Receive Date: 20211005
  Receipt Date: 20211005
  Transmission Date: 20220303
  Serious: Yes (Death)
  Sender: FDA-Public Use
  Company Number: None

PATIENT
  Age: 59 Year
  Sex: Male

DRUGS (25)
  1. PROMACTA [Suspect]
     Active Substance: ELTROMBOPAG OLAMINE
     Route: 048
  2. OMEPRAZOLE [Concomitant]
     Active Substance: OMEPRAZOLE
  3. SENNACOT [Concomitant]
  4. VITAMIN D3 SUPER STRENGTH [Concomitant]
  5. FUROSEMIDE [Concomitant]
     Active Substance: FUROSEMIDE
  6. LEVOTHYROXINE [Concomitant]
     Active Substance: LEVOTHYROXINE
  7. LOSARTAN [Concomitant]
     Active Substance: LOSARTAN
  8. VITAMIN B1 [Concomitant]
     Active Substance: THIAMINE HYDROCHLORIDE
  9. METOPROLOL TARTRATE [Concomitant]
     Active Substance: METOPROLOL TARTRATE
  10. TRAZODONE [Concomitant]
     Active Substance: TRAZODONE HYDROCHLORIDE
  11. ELIQUIS [Concomitant]
     Active Substance: APIXABAN
  12. VITAMIN C [Concomitant]
     Active Substance: ASCORBIC ACID
  13. ATORVASTATIN [Concomitant]
     Active Substance: ATORVASTATIN
  14. BACLOFEN [Concomitant]
     Active Substance: BACLOFEN
  15. DOXYCYCLINE [Concomitant]
     Active Substance: DOXYCYCLINE
  16. IRON [Concomitant]
     Active Substance: IRON
  17. FLUCONAZOLE [Concomitant]
     Active Substance: FLUCONAZOLE
  18. FOLIC ACID [Concomitant]
     Active Substance: FOLIC ACID
  19. GABAPENTIN [Concomitant]
     Active Substance: GABAPENTIN
  20. LANTUS SOLOSTAR [Concomitant]
     Active Substance: INSULIN GLARGINE
  21. HUMALOG KWIKPEN [Concomitant]
     Active Substance: INSULIN LISPRO
  22. MAGNESIUM [Concomitant]
     Active Substance: MAGNESIUM
  23. METFORMIN [Concomitant]
     Active Substance: METFORMIN HYDROCHLORIDE
  24. MULTIVITAMIN ADULT [Concomitant]
  25. LOVAZA [Concomitant]
     Active Substance: OMEGA-3-ACID ETHYL ESTERS

REACTIONS (1)
  - Death [None]

NARRATIVE: CASE EVENT DATE: 20211004
